FAERS Safety Report 6933258-5 (Version None)
Quarter: 2010Q3

REPORT INFORMATION
  Report Type: 
  Country: None (occurrence: None)
  Receive Date: 20100818
  Receipt Date: 20100818
  Transmission Date: 20110219
  Serious: Yes (Other)
  Sender: FDA-Public Use
  Company Number: None

PATIENT
  Sex: Female

DRUGS (1)
  1. CALCITONIN SALMON [Suspect]
     Indication: OSTEOPOROSIS
     Dosage: 1 SPRAY QD INH.
     Route: 055
     Dates: start: 20091101

REACTIONS (2)
  - DEVICE COMPONENT ISSUE [None]
  - DEVICE MALFUNCTION [None]
